FAERS Safety Report 9333484 (Version 1)
Quarter: 2013Q2

REPORT INFORMATION
  Report Type: Spontaneous
  Country: FR (occurrence: FR)
  Receive Date: 20130606
  Receipt Date: 20130606
  Transmission Date: 20140414
  Serious: Yes (Other)
  Sender: FDA-Public Use
  Company Number: FR-BRISTOL-MYERS SQUIBB COMPANY-18928929

PATIENT
  Age: 63 Year
  Sex: Female
  Weight: 65 kg

DRUGS (5)
  1. SPRYCEL [Suspect]
     Indication: ACUTE MYELOID LEUKAEMIA
     Dosage: PLANNED TO DISCONTINUED ON 07MAY2010.RECHA;15JUL10;10MAY11
     Route: 048
     Dates: start: 20100310, end: 20130402
  2. DIFFU-K [Concomitant]
     Dosage: 1DF: 4CAPS
  3. ROVAMYCINE [Concomitant]
     Dosage: 1 DF =  1.5MIU
  4. AMLOR [Concomitant]
  5. UVEDOSE [Concomitant]

REACTIONS (7)
  - Stem cell transplant [Unknown]
  - Graft versus host disease [Unknown]
  - Pancytopenia [Unknown]
  - Neutropenia [Unknown]
  - Thrombocytopenia [Unknown]
  - Thrombotic microangiopathy [Unknown]
  - Pleural effusion [Not Recovered/Not Resolved]
